FAERS Safety Report 7051842-8 (Version None)
Quarter: 2010Q4

REPORT INFORMATION
  Report Type: 
  Country: None (occurrence: None)
  Receive Date: 20101019
  Receipt Date: 20101013
  Transmission Date: 20110411
  Serious: Yes (Hospitalization)
  Sender: FDA-Public Use
  Company Number: RU-SANOFI-AVENTIS-2010SA062236

PATIENT
  Age: 56 Year
  Sex: Female

DRUGS (3)
  1. TRENTAL [Suspect]
     Indication: ENCEPHALOPATHY
     Route: 042
     Dates: start: 20100928, end: 20100928
  2. PREDUCTAL [Concomitant]
     Route: 048
     Dates: start: 20100901
  3. ARIFON [Concomitant]
     Route: 048
     Dates: start: 20100401

REACTIONS (5)
  - BLOOD PRESSURE INCREASED [None]
  - CHILLS [None]
  - HEADACHE [None]
  - TREMOR [None]
  - VOMITING [None]
